FAERS Safety Report 5065980-2 (Version None)
Quarter: 2006Q3

REPORT INFORMATION
  Report Type: 
  Country: None (occurrence: None)
  Receive Date: 20060728
  Receipt Date: 20060728
  Transmission Date: 20061208
  Serious: Yes (Other)
  Sender: FDA-Public Use
  Company Number: None

PATIENT
  Sex: Female
  Weight: 90.7194 kg

DRUGS (2)
  1. VERAPAMIL [Suspect]
     Indication: HEART RATE INCREASED
     Dosage: 30MG?   ONCE DAILY  PO
     Route: 048
     Dates: start: 19950401, end: 20050301
  2. VERAPAMIL [Suspect]
     Indication: HYPERTENSION
     Dosage: 30MG?   ONCE DAILY  PO
     Route: 048
     Dates: start: 19950401, end: 20050301

REACTIONS (3)
  - BLOOD PROLACTIN INCREASED [None]
  - GALACTORRHOEA [None]
  - PITUITARY TUMOUR [None]
